FAERS Safety Report 5876004-9 (Version None)
Quarter: 2008Q3

REPORT INFORMATION
  Report Type: 
  Country: None (occurrence: None)
  Receive Date: 20080910
  Receipt Date: 20080905
  Transmission Date: 20090109
  Serious: Yes (Death, Hospitalization)
  Sender: FDA-Public Use
  Company Number: US-CELGENEUS-163-20785-08041968

PATIENT
  Sex: Female

DRUGS (4)
  1. THALOMID [Suspect]
     Indication: MALIGNANT SOFT TISSUE NEOPLASM
     Route: 048
     Dates: start: 20080301
  2. THALOMID [Suspect]
     Indication: UNDIFFERENTIATED SARCOMA
     Dosage: 250-300MG
     Route: 048
     Dates: start: 20080124, end: 20080202
  3. CYCLOPHOSPHAMIDE [Concomitant]
     Indication: UNDIFFERENTIATED SARCOMA
     Route: 048
  4. CELEBREX [Concomitant]
     Indication: UNDIFFERENTIATED SARCOMA
     Route: 065

REACTIONS (3)
  - COLLAPSE OF LUNG [None]
  - DISEASE PROGRESSION [None]
  - RESPIRATORY FAILURE [None]
